FAERS Safety Report 25992767 (Version 1)
Quarter: 2025Q4

REPORT INFORMATION
  Report Type: Report from Study
  Country: CA (occurrence: CA)
  Receive Date: 20251103
  Receipt Date: 20251103
  Transmission Date: 20260117
  Serious: Yes (Death, Other)
  Sender: ABBVIE
  Company Number: CA-ABBVIE-6505405

PATIENT
  Age: 68 Year
  Sex: Male

DRUGS (3)
  1. VENCLEXTA [Suspect]
     Active Substance: VENETOCLAX
     Indication: Mantle cell lymphoma
     Dosage: FORM STRENGTH: 100 MG
     Route: 048
     Dates: start: 20240517, end: 20240712
  2. VENCLEXTA [Suspect]
     Active Substance: VENETOCLAX
     Indication: Mantle cell lymphoma
     Dosage: FORM STRENGTH: 100 MG, DRUG STOP DATE: OCT 2025
     Route: 048
     Dates: start: 20251021
  3. RITUXAN [Concomitant]
     Active Substance: RITUXIMAB
     Indication: Product used for unknown indication

REACTIONS (2)
  - Death [Fatal]
  - Mantle cell lymphoma recurrent [Unknown]

NARRATIVE: CASE EVENT DATE: 20251026
